FAERS Safety Report 13418091 (Version 3)
Quarter: 2017Q2

REPORT INFORMATION
  Report Type: Spontaneous
  Country: HU (occurrence: HU)
  Receive Date: 20170407
  Receipt Date: 20170517
  Transmission Date: 20170830
  Serious: Yes (Disabling)
  Sender: FDA-Public Use
  Company Number: HU-009507513-1704HUN000093

PATIENT
  Age: 66 Year
  Sex: Male

DRUGS (1)
  1. DIPROPHOS [Suspect]
     Active Substance: BETAMETHASONE DIPROPIONATE\BETAMETHASONE SODIUM PHOSPHATE
     Indication: ROTATOR CUFF SYNDROME
     Dosage: 1DF=EQUIVALENT TO 7MG BETAMETHASONE (STRENGTH: 7 MG/ML)
     Dates: start: 20170309, end: 20170309

REACTIONS (2)
  - Product contamination [Unknown]
  - Periarthritis [Not Recovered/Not Resolved]

NARRATIVE: CASE EVENT DATE: 20170310
